FAERS Safety Report 5096247-4 (Version None)
Quarter: 2006Q3

REPORT INFORMATION
  Report Type: 
  Country: None (occurrence: None)
  Receive Date: 20060905
  Receipt Date: 20060719
  Transmission Date: 20061208
  Serious: Yes (Hospitalization)
  Sender: FDA-Public Use
  Company Number: ZA-NOVOPROD-255376

PATIENT
  Age: 40 Year
  Sex: Male
  Weight: 62 kg

DRUGS (4)
  1. DISPRIN CV [Concomitant]
     Dosage: 100 MG, UNK
     Route: 048
     Dates: start: 20060221
  2. LEVEMIR [Suspect]
     Indication: DIABETES MELLITUS INSULIN-DEPENDENT
     Dosage: 110 U, QD
     Route: 058
     Dates: start: 20060328
  3. ADALAT [Concomitant]
     Dosage: 30 MG, UNK
     Route: 048
     Dates: start: 20060221
  4. BEZAFIBRATE [Concomitant]
     Dosage: 400 MG, UNK
     Route: 048
     Dates: start: 20060222

REACTIONS (5)
  - BLADDER HYPERTROPHY [None]
  - DIABETIC KETOACIDOSIS [None]
  - HYPOGLYCAEMIC COMA [None]
  - METABOLIC ACIDOSIS [None]
  - UPPER RESPIRATORY TRACT INFECTION [None]
